FAERS Safety Report 10412545 (Version 1)
Quarter: 2014Q3

REPORT INFORMATION
  Report Type: Spontaneous
  Country: US (occurrence: US)
  Receive Date: 20140827
  Receipt Date: 20140827
  Transmission Date: 20150326
  Serious: Yes (Other)
  Sender: FDA-Public Use
  Company Number: US-FRI-1000070071

PATIENT
  Age: 79 Year
  Sex: Male

DRUGS (2)
  1. NAMENDA XR [Suspect]
     Active Substance: MEMANTINE HYDROCHLORIDE
     Indication: DEMENTIA ALZHEIMER^S TYPE
     Dosage: 14 MG
     Route: 048
     Dates: start: 201408, end: 20140818
  2. NAMENDA XR [Suspect]
     Active Substance: MEMANTINE HYDROCHLORIDE
     Indication: DEMENTIA ALZHEIMER^S TYPE
     Dosage: 7 MG
     Route: 048
     Dates: start: 201408, end: 201408

REACTIONS (6)
  - Emotional disorder [Recovering/Resolving]
  - Blindness transient [Recovering/Resolving]
  - Tinnitus [Recovering/Resolving]
  - Mental status changes [Recovering/Resolving]
  - Confusional state [Recovering/Resolving]
  - Constipation [Recovering/Resolving]

NARRATIVE: CASE EVENT DATE: 20140814
